FAERS Safety Report 8311102-1 (Version None)
Quarter: 2012Q2

REPORT INFORMATION
  Report Type: 
  Country: None (occurrence: None)
  Receive Date: 20120425
  Receipt Date: 20120419
  Transmission Date: 20120825
  Serious: Yes (Hospitalization, Other)
  Sender: FDA-Public Use
  Company Number: US-ALEXION-A201200554

PATIENT
  Sex: Female

DRUGS (23)
  1. ATENOLOL [Concomitant]
     Dosage: 25 MG, BID
  2. GLIPIZIDE [Concomitant]
     Indication: DIABETES MELLITUS
     Dosage: 10 MG, PRN
  3. LISINOPRIL [Concomitant]
     Dosage: UNK
  4. PROTONIX [Concomitant]
     Dosage: 40 MG, QD
  5. COMBIVENT [Concomitant]
     Dosage: 2 PUFFS, BID
  6. ALPHAGAN [Concomitant]
     Dosage: 1 GTT, BID
     Route: 031
  7. SOLIRIS [Suspect]
     Indication: PAROXYSMAL NOCTURNAL HAEMOGLOBINURIA
     Dosage: 900 MG, Q2W
     Route: 042
  8. EXJADE [Suspect]
     Dosage: UNK
  9. PROCRIT [Concomitant]
     Dosage: 10,000 UNITS, UNK
  10. PREDNISONE [Concomitant]
     Dosage: 2 MG, QD
  11. ASPIRIN [Concomitant]
     Dosage: 81 MG, QD
  12. MULTI-VITAMIN [Concomitant]
     Dosage: UNK, QD
  13. HUMALOG [Concomitant]
     Indication: DIABETES MELLITUS
     Dosage: SLIDING SCALE
  14. ALLOPURINOL [Concomitant]
     Dosage: 10 MG, PRN
  15. LOVENOX [Concomitant]
     Dosage: 40 MG, QD
  16. LASIX [Concomitant]
     Dosage: 40 MG, QD
  17. CRESTOR [Concomitant]
     Dosage: 5 MG, QD
  18. NITROGLYCERIN [Concomitant]
     Dosage: UNK, PRN
  19. CALCIUM + VITAMIN D [Concomitant]
     Dosage: 1 1/2 TAB, QD
  20. NORVASC [Concomitant]
     Dosage: 5 MG, QD
  21. OXYCODONE HCL [Concomitant]
     Dosage: 5 MG, Q 4 HRS.
  22. TIMOLOL MALEATE [Concomitant]
     Dosage: 1 GTT, BID
     Route: 031
  23. TYLENOL (CAPLET) [Concomitant]
     Dosage: 650 MG, PRN

REACTIONS (6)
  - INFECTED CYST [None]
  - ABDOMINAL PAIN [None]
  - URINARY TRACT INFECTION [None]
  - ACUTE MYOCARDIAL INFARCTION [None]
  - HAEMOGLOBIN DECREASED [None]
  - DIARRHOEA [None]
